FAERS Safety Report 9634759 (Version 1)
Quarter: 2013Q4

REPORT INFORMATION
  Report Type: Report from Study
  Country: BR (occurrence: BR)
  Receive Date: 20131021
  Receipt Date: 20131021
  Transmission Date: 20140711
  Serious: Yes (Disabling, Other)
  Sender: FDA-Public Use
  Company Number: PHHY2013BR117893

PATIENT
  Sex: Female

DRUGS (9)
  1. ACLASTA [Suspect]
     Indication: OSTEOPOROSIS
     Dosage: 5 MG, UNK
     Route: 042
     Dates: start: 2009
  2. DIPIRONE [Concomitant]
     Dosage: UNK UKN, UNK
     Dates: start: 1998
  3. BUSCOPAN [Concomitant]
     Dosage: UNK UKN, UNK
     Dates: start: 2012
  4. ACETYLSALICYLIC ACID [Concomitant]
     Dosage: UNK UKN, UNK
     Dates: start: 2012
  5. LEVOTHYROXINE [Concomitant]
     Dosage: UNK UKN, UNK
     Dates: start: 2012
  6. CALCIUM CARBONATE [Concomitant]
     Dosage: UNK UKN, UNK
     Dates: start: 1998
  7. VITAMIN D [Concomitant]
     Dosage: UNK UKN, UNK
     Dates: start: 1998
  8. SIMVASTATIN [Concomitant]
     Dosage: UNK UKN, UNK
     Dates: start: 2012
  9. FLUOXETINE [Concomitant]
     Dosage: UNK UKN, UNK
     Dates: start: 1998

REACTIONS (7)
  - Ischaemic stroke [Not Recovered/Not Resolved]
  - Aphasia [Not Recovered/Not Resolved]
  - Convulsion [Not Recovered/Not Resolved]
  - Pharyngitis [Not Recovered/Not Resolved]
  - Tonsillitis [Not Recovered/Not Resolved]
  - Sinusitis [Not Recovered/Not Resolved]
  - Eating disorder [Unknown]
